FAERS Safety Report 11313648 (Version 1)
Quarter: 2015Q3

REPORT INFORMATION
  Report Type: Spontaneous
  Country: US (occurrence: US)
  Receive Date: 20150727
  Receipt Date: 20150727
  Transmission Date: 20151125
  Serious: No
  Sender: FDA-Public Use
  Company Number: US-PFIZER INC-2015218436

PATIENT
  Age: 77 Year
  Sex: Female

DRUGS (1)
  1. IBRANCE [Suspect]
     Active Substance: PALBOCICLIB
     Dosage: 125 MG, Q DAY X 21 DAYS 7 DAYS REST PERIOD
     Dates: start: 20150617, end: 20150701

REACTIONS (2)
  - Cardiac disorder [Unknown]
  - Heart rate increased [Unknown]
